FAERS Safety Report 5411436-4 (Version None)
Quarter: 2007Q3

REPORT INFORMATION
  Report Type: 
  Country: None (occurrence: None)
  Receive Date: 20070810
  Receipt Date: 20070808
  Transmission Date: 20080115
  Serious: Yes (Hospitalization)
  Sender: FDA-Public Use
  Company Number: FR-BRISTOL-MYERS SQUIBB COMPANY-13873070

PATIENT
  Age: 76 Year

DRUGS (8)
  1. COUMADIN [Suspect]
     Indication: ATRIAL FIBRILLATION
     Route: 048
     Dates: start: 20070519, end: 20070531
  2. MEDIATENSYL [Suspect]
     Indication: HYPERTENSION
     Route: 048
     Dates: start: 20070518, end: 20070523
  3. HYDERGINE [Concomitant]
     Route: 048
  4. AMIODARONE HCL [Concomitant]
     Indication: ATRIAL FIBRILLATION
     Route: 048
     Dates: start: 20070519
  5. ACETAMINOPHEN AND TRAMADOL HCL [Concomitant]
     Indication: BONE PAIN
     Route: 048
  6. SIMVASTATIN [Concomitant]
     Indication: ATRIAL FIBRILLATION
     Route: 048
  7. KARDEGIC [Concomitant]
     Indication: ATRIAL FIBRILLATION
     Route: 048
  8. RABEPRAZOLE SODIUM [Concomitant]
     Route: 048

REACTIONS (3)
  - PRURITUS [None]
  - PSEUDOLYMPHOMA [None]
  - RASH PAPULAR [None]
